FAERS Safety Report 5941078-3 (Version None)
Quarter: 2008Q4

REPORT INFORMATION
  Report Type: 
  Country: None (occurrence: None)
  Receive Date: 20081104
  Receipt Date: 20081031
  Transmission Date: 20090506
  Serious: Yes (Death)
  Sender: FDA-Public Use
  Company Number: CN-B.I. PHARMACEUTICALS,INC./RIDGEFIELD-2008-SG-00063SG

PATIENT
  Age: 76 Year
  Sex: Male

DRUGS (1)
  1. MOBIC [Suspect]
     Dosage: 7.5MG
     Route: 048

REACTIONS (1)
  - ULCER HAEMORRHAGE [None]
